FAERS Safety Report 6385637-5 (Version None)
Quarter: 2009Q4

REPORT INFORMATION
  Report Type: 
  Country: None (occurrence: None)
  Receive Date: 20091002
  Receipt Date: 20081013
  Transmission Date: 20100525
  Serious: No
  Sender: FDA-Public Use
  Company Number: US-ASTRAZENECA-2008UW22379

PATIENT
  Sex: Female
  Weight: 81.6 kg

DRUGS (8)
  1. ARIMIDEX [Suspect]
     Indication: BREAST CANCER
     Route: 048
     Dates: start: 20070701
  2. TOPROL-XL [Concomitant]
  3. JANUMET [Concomitant]
  4. ASPIRIN [Concomitant]
  5. VITAMINS [Concomitant]
  6. IRON [Concomitant]
  7. SIMVASTATIN [Concomitant]
  8. MAGOX [Concomitant]

REACTIONS (4)
  - ANAEMIA [None]
  - ARTHRALGIA [None]
  - BODY HEIGHT DECREASED [None]
  - RASH MACULAR [None]
